FAERS Safety Report 11875211 (Version 1)
Quarter: 2015Q4

REPORT INFORMATION
  Report Type: Spontaneous
  Country: US (occurrence: None)
  Receive Date: 20151228
  Receipt Date: 20151228
  Transmission Date: 20160305
  Serious: No
  Sender: FDA-Public Use
  Company Number: None

PATIENT
  Age: 58 Year
  Sex: Female
  Weight: 58.97 kg

DRUGS (1)
  1. RESTASIS [Suspect]
     Active Substance: CYCLOSPORINE
     Indication: DRY EYE
     Dosage: 1 DROP IN EACH EYE
     Route: 047
     Dates: start: 20150801, end: 20151227

REACTIONS (4)
  - Eye pruritus [None]
  - Drug ineffective [None]
  - Eye irritation [None]
  - Foreign body sensation in eyes [None]
